FAERS Safety Report 20435988 (Version 2)
Quarter: 2022Q1

REPORT INFORMATION
  Report Type: Report from Study
  Country: CA (occurrence: CA)
  Receive Date: 20220207
  Receipt Date: 20220316
  Transmission Date: 20220423
  Serious: Yes (Hospitalization, Other)
  Sender: FDA-Public Use
  Company Number: CA-ABBVIE-22K-028-4263892-00

PATIENT
  Sex: Female

DRUGS (3)
  1. HUMIRA [Suspect]
     Active Substance: ADALIMUMAB
     Indication: Crohn^s disease
     Route: 058
     Dates: start: 20111008
  2. METHOTREXATE [Concomitant]
     Active Substance: METHOTREXATE
     Indication: Product used for unknown indication
  3. FENOFIBRIC ACID [Concomitant]
     Active Substance: FENOFIBRIC ACID
     Indication: Product used for unknown indication

REACTIONS (11)
  - Abdominal pain upper [Recovered/Resolved]
  - Mastication disorder [Recovered/Resolved]
  - Gastrointestinal surgery [Unknown]
  - Obstruction [Recovered/Resolved]
  - Purulence [Unknown]
  - Volvulus [Unknown]
  - Memory impairment [Unknown]
  - Gastrointestinal motility disorder [Unknown]
  - Post procedural complication [Unknown]
  - Frequent bowel movements [Unknown]
  - Tooth disorder [Unknown]
